FAERS Safety Report 5924331-9 (Version None)
Quarter: 2008Q4

REPORT INFORMATION
  Report Type: 
  Country: None (occurrence: None)
  Receive Date: 20081020
  Receipt Date: 20081013
  Transmission Date: 20090506
  Serious: Yes (Hospitalization)
  Sender: FDA-Public Use
  Company Number: FR-ROCHE-582245

PATIENT
  Age: 61 Year
  Sex: Male

DRUGS (3)
  1. ROCEPHIN [Suspect]
     Indication: DRUG USE FOR UNKNOWN INDICATION
     Dosage: FORM: INJECTABLE SOLUTION.
     Route: 030
     Dates: start: 20080315, end: 20080401
  2. OMEPRAZOLE [Suspect]
     Route: 048
     Dates: start: 20080310, end: 20080315
  3. BI-PROFENID [Suspect]
     Route: 048
     Dates: start: 20080310, end: 20080315

REACTIONS (1)
  - STEVENS-JOHNSON SYNDROME [None]
